FAERS Safety Report 7860912-3 (Version None)
Quarter: 2011Q4

REPORT INFORMATION
  Report Type: 
  Country: None (occurrence: None)
  Receive Date: 20111026
  Receipt Date: 20111015
  Transmission Date: 20120403
  Serious: Yes (Hospitalization)
  Sender: FDA-Public Use
  Company Number: 2011SP048903

PATIENT
  Age: 54 Year
  Sex: Female

DRUGS (4)
  1. PEG-INTRON [Suspect]
     Indication: HEPATITIS C
     Dates: start: 20091101, end: 20100301
  2. PEG-INTRON [Suspect]
     Indication: HEPATITIS C
     Dates: start: 20110919
  3. RIBAVIRIN [Suspect]
     Indication: HEPATITIS C
     Dates: start: 20091101, end: 20100301
  4. RIBAVIRIN [Suspect]
     Indication: HEPATITIS C
     Dates: start: 20110919

REACTIONS (2)
  - HEMIPLEGIA [None]
  - CONVULSION [None]
